FAERS Safety Report 15637376 (Version 1)
Quarter: 2018Q4

REPORT INFORMATION
  Report Type: Spontaneous
  Country: US (occurrence: US)
  Receive Date: 20181120
  Receipt Date: 20181120
  Transmission Date: 20190205
  Serious: No
  Sender: FDA-Public Use
  Company Number: US-JNJFOC-20180511489

PATIENT
  Age: 68 Year
  Sex: Male
  Weight: 65 kg

DRUGS (16)
  1. METOPROLOL. [Concomitant]
     Active Substance: METOPROLOL
  2. VALSARTAN. [Concomitant]
     Active Substance: VALSARTAN
  3. GARLIC. [Concomitant]
     Active Substance: GARLIC
  4. ALBUTEROL. [Concomitant]
     Active Substance: ALBUTEROL
  5. FISH OIL [Concomitant]
     Active Substance: FISH OIL
  6. CALCIUM [Concomitant]
     Active Substance: CALCIUM
  7. LEVOFLOXACIN. [Concomitant]
     Active Substance: LEVOFLOXACIN
  8. VITAMIN C [Concomitant]
     Active Substance: ASCORBIC ACID
  9. THIAMINE HYDROCHLORIDE. [Concomitant]
     Active Substance: THIAMINE HYDROCHLORIDE
  10. IMBRUVICA [Suspect]
     Active Substance: IBRUTINIB
     Indication: CHRONIC LYMPHOCYTIC LEUKAEMIA
     Route: 048
     Dates: start: 20170315, end: 201801
  11. IMBRUVICA [Suspect]
     Active Substance: IBRUTINIB
     Indication: CHRONIC LYMPHOCYTIC LEUKAEMIA
     Route: 048
     Dates: start: 201801, end: 201804
  12. AMLODIPINE [Concomitant]
     Active Substance: AMLODIPINE BESYLATE
  13. BIFIDOBACTERIUM LACTIS [Concomitant]
     Active Substance: BIFIDOBACTERIUM ANIMALIS LACTIS
  14. CYANOCOBALAMIN. [Concomitant]
     Active Substance: CYANOCOBALAMIN
  15. IMBRUVICA [Suspect]
     Active Substance: IBRUTINIB
     Indication: CHRONIC LYMPHOCYTIC LEUKAEMIA
     Route: 048
     Dates: start: 201804
  16. MULTIVITAMINS [Concomitant]
     Active Substance: VITAMINS

REACTIONS (4)
  - Off label use [Unknown]
  - Pruritus [Recovering/Resolving]
  - Incorrect dose administered [Unknown]
  - Skin exfoliation [Not Recovered/Not Resolved]

NARRATIVE: CASE EVENT DATE: 201801
